FAERS Safety Report 10056802 (Version 1)
Quarter: 2014Q2

REPORT INFORMATION
  Report Type: Spontaneous
  Country: TN (occurrence: TN)
  Receive Date: 20140403
  Receipt Date: 20140403
  Transmission Date: 20141212
  Serious: Yes (Other)
  Sender: FDA-Public Use
  Company Number: PHHY2014TN037930

PATIENT
  Age: 37 Year
  Sex: Male

DRUGS (1)
  1. CLARITHROMYCIN [Suspect]
     Indication: PHARYNGITIS
     Dosage: 500 MG, BID

REACTIONS (5)
  - Psoriasis [Recovering/Resolving]
  - Skin plaque [Recovering/Resolving]
  - Dry skin [Recovering/Resolving]
  - Rash erythematous [Recovering/Resolving]
  - Skin disorder [Recovering/Resolving]
